FAERS Safety Report 6644246-0 (Version None)
Quarter: 2010Q1

REPORT INFORMATION
  Report Type: 
  Country: None (occurrence: None)
  Receive Date: 20100319
  Receipt Date: 20100319
  Transmission Date: 20100710
  Serious: Yes (Hospitalization)
  Sender: FDA-Public Use
  Company Number: None

PATIENT
  Age: 70 Year
  Sex: Female
  Weight: 68.18 kg

DRUGS (13)
  1. TRAMADOL HCL [Suspect]
     Indication: OVARIAN CANCER
     Dosage: 50MG / 3DAY BID/Q12H PO/PO
     Route: 048
  2. TRAMADOL HCL [Suspect]
     Indication: PAIN
     Dosage: 50MG / 3DAY BID/Q12H PO/PO
     Route: 048
  3. NORCO [Suspect]
     Indication: OVARIAN CANCER
     Dosage: 1 TABLET Q4H PRN PO
     Route: 048
  4. NORCO [Suspect]
     Indication: PAIN
     Dosage: 1 TABLET Q4H PRN PO
     Route: 048
  5. ROXANOL [Suspect]
     Indication: OVARIAN CANCER
  6. ROXANOL [Suspect]
     Indication: PAIN
  7. AMLODIPINE [Concomitant]
  8. NEXIUM [Concomitant]
  9. REGLAN [Concomitant]
  10. MIRALAX [Concomitant]
  11. NORCO [Concomitant]
  12. GABAPENTIN [Concomitant]
  13. HYDROCORTISONE [Concomitant]

REACTIONS (6)
  - BLOOD POTASSIUM DECREASED [None]
  - NAUSEA [None]
  - PNEUMONIA ASPIRATION [None]
  - RENAL FAILURE ACUTE [None]
  - RESPIRATORY FAILURE [None]
  - VOMITING [None]
